FAERS Safety Report 21151663 (Version 2)
Quarter: 2022Q3

REPORT INFORMATION
  Report Type: Report from Study
  Country: HU (occurrence: HU)
  Receive Date: 20220730
  Receipt Date: 20220910
  Transmission Date: 20221027
  Serious: Yes (Death, Hospitalization, Other)
  Sender: FDA-Public Use
  Company Number: HU-NOVARTISPH-NVSC2022HU172616

PATIENT
  Age: 62 Year
  Sex: Male
  Weight: 78 kg

DRUGS (6)
  1. ENTRESTO [Suspect]
     Active Substance: SACUBITRIL\VALSARTAN
     Indication: Cardiac failure
     Dosage: 1 DOSAGE FORM, BID (49/51 MG)
     Route: 048
     Dates: start: 20220128, end: 20220417
  2. BISOPROLOL [Suspect]
     Active Substance: BISOPROLOL
     Indication: Myocardial ischaemia
     Dosage: 5 MG
     Route: 048
     Dates: start: 2002, end: 20220418
  3. ROSUVASTATIN [Suspect]
     Active Substance: ROSUVASTATIN
     Indication: Product used for unknown indication
     Dosage: 40 MG
     Route: 048
     Dates: start: 2013, end: 20220418
  4. CLOPIDOGREL [Concomitant]
     Active Substance: CLOPIDOGREL BISULFATE
     Indication: Product used for unknown indication
     Dosage: 75 MG
     Route: 048
     Dates: start: 2002, end: 20220418
  5. EPLERENONE [Concomitant]
     Active Substance: EPLERENONE
     Indication: Product used for unknown indication
     Dosage: 25 MG
     Route: 048
     Dates: start: 2019, end: 20220416
  6. LEVOSIMENDAN [Concomitant]
     Active Substance: LEVOSIMENDAN
     Indication: Product used for unknown indication
     Dosage: UNK
     Route: 065

REACTIONS (20)
  - Cerebrovascular accident [Fatal]
  - Acute myocardial infarction [Fatal]
  - Loss of consciousness [Fatal]
  - Ventricular tachycardia [Fatal]
  - Acute kidney injury [Fatal]
  - Cardiac arrest [Fatal]
  - Respiratory arrest [Fatal]
  - Cardiac failure [Unknown]
  - Syncope [Unknown]
  - Pericardial effusion [Unknown]
  - Angina pectoris [Unknown]
  - Aortic stenosis [Unknown]
  - Arrhythmia [Unknown]
  - Bradycardia [Unknown]
  - Low cardiac output syndrome [Unknown]
  - Ejection fraction decreased [Unknown]
  - Aortic disorder [Unknown]
  - N-terminal prohormone brain natriuretic peptide abnormal [Unknown]
  - Glomerular filtration rate abnormal [Unknown]
  - Hypotension [Unknown]

NARRATIVE: CASE EVENT DATE: 20220101
